FAERS Safety Report 22195938 (Version 4)
Quarter: 2023Q4

REPORT INFORMATION
  Report Type: Spontaneous
  Country: US (occurrence: US)
  Receive Date: 20230411
  Receipt Date: 20231013
  Transmission Date: 20240110
  Serious: No
  Sender: FDA-Public Use
  Company Number: US-AMGEN-USASP2023060306

PATIENT
  Age: 28 Year
  Sex: Female

DRUGS (1)
  1. AIMOVIG [Suspect]
     Active Substance: ERENUMAB-AOOE
     Indication: Migraine prophylaxis
     Dosage: 140 MILLIGRAM, QMO
     Route: 058

REACTIONS (9)
  - Wrong technique in product usage process [Unknown]
  - Injection site vesicles [Unknown]
  - Incorrect dose administered [Unknown]
  - Nervous system disorder [Not Recovered/Not Resolved]
  - Accidental exposure to product [Unknown]
  - Injection site pain [Unknown]
  - Injection site reaction [Unknown]
  - Device difficult to use [Unknown]
  - Illness [Unknown]

NARRATIVE: CASE EVENT DATE: 20230101
